FAERS Safety Report 5082741-9 (Version None)
Quarter: 2006Q3

REPORT INFORMATION
  Report Type: 
  Country: None (occurrence: None)
  Receive Date: 20060816
  Receipt Date: 20060816
  Transmission Date: 20061208
  Serious: Yes (Life-Threatening, Hospitalization)
  Sender: FDA-Public Use
  Company Number: None

PATIENT
  Age: 54 Year
  Sex: Male
  Weight: 86.1834 kg

DRUGS (2)
  1. TAXUS EXPRESS STENT 3.5 X 12 MM SCI-MED [Suspect]
     Indication: ANGINA PECTORIS
     Dates: start: 20050104, end: 20050104
  2. TAXUS EXPRESS STENT 3.5 X 12 MM SCI-MED [Suspect]
     Indication: CORONARY ARTERY DISEASE
     Dates: start: 20050104, end: 20050104

REACTIONS (4)
  - EJECTION FRACTION DECREASED [None]
  - MEDICAL DEVICE COMPLICATION [None]
  - MYOCARDIAL INFARCTION [None]
  - THROMBOSIS IN DEVICE [None]
